FAERS Safety Report 5329700-6 (Version None)
Quarter: 2007Q2

REPORT INFORMATION
  Report Type: 
  Country: None (occurrence: None)
  Receive Date: 20070515
  Receipt Date: 20070502
  Transmission Date: 20071010
  Serious: Yes (Other)
  Sender: FDA-Public Use
  Company Number: 02100-JPN-07-0222

PATIENT
  Age: 82 Year
  Sex: Male

DRUGS (8)
  1. CILOSTAZOL [Suspect]
     Indication: CEREBRAL INFARCTION
     Dosage: 200 MG, ORAL
     Route: 048
     Dates: start: 20070330, end: 20070404
  2. CILOSTAZOL [Suspect]
     Indication: CEREBRAL INFARCTION
     Dosage: 200 MG, ORAL
     Route: 048
     Dates: start: 20070416, end: 20070501
  3. TAMSULOSIN HCL [Suspect]
     Dosage: ORAL
     Route: 048
  4. RANITIDINE HYDROCHLORIDE [Suspect]
     Dosage: 300  MG, ORAL
     Route: 048
     Dates: start: 20070302
  5. ARGATROBAN [Suspect]
     Dates: start: 20070330, end: 20070405
  6. ASPIRIN [Suspect]
     Dosage: 100  MG, ORAL
     Route: 048
     Dates: start: 20070405
  7. CLOPIDOGREL BISULFATE [Suspect]
     Dosage: 75 MG, ORAL
     Route: 048
     Dates: start: 20070405, end: 20070416
  8. ATORVASTATIN CALCIUM [Suspect]
     Dosage: 5 MG, ORAL
     Route: 048
     Dates: start: 20070406

REACTIONS (4)
  - HAEMATOCRIT DECREASED [None]
  - HAEMOGLOBIN DECREASED [None]
  - PLATELET COUNT INCREASED [None]
  - RED BLOOD CELL COUNT DECREASED [None]
